FAERS Safety Report 6669467-2 (Version None)
Quarter: 2010Q2

REPORT INFORMATION
  Report Type: 
  Country: None (occurrence: None)
  Receive Date: 20100406
  Receipt Date: 20100326
  Transmission Date: 20101027
  Serious: Yes (Other)
  Sender: FDA-Public Use
  Company Number: PHHY2010IE05735

PATIENT
  Sex: Male
  Weight: 90 kg

DRUGS (4)
  1. CLOZARIL [Suspect]
     Indication: SCHIZOPHRENIA
     Dosage: UNK
     Dates: start: 20050401
  2. SOLIAN [Concomitant]
     Indication: SCHIZOPHRENIA
     Dosage: 400 MG
     Route: 048
  3. NEXIUM [Concomitant]
     Indication: ABDOMINAL DISCOMFORT
     Dosage: 40 MG
     Route: 048
  4. PROTHIADEN [Concomitant]
     Indication: DEPRESSION
     Dosage: 225 MG
     Route: 048

REACTIONS (5)
  - INFLUENZA LIKE ILLNESS [None]
  - LOWER RESPIRATORY TRACT INFECTION [None]
  - OROPHARYNGEAL PAIN [None]
  - PYREXIA [None]
  - URINARY TRACT INFECTION [None]
